FAERS Safety Report 5716580-X (Version None)
Quarter: 2008Q2

REPORT INFORMATION
  Report Type: 
  Country: None (occurrence: None)
  Receive Date: 20080424
  Receipt Date: 20080411
  Transmission Date: 20081010
  Serious: Yes (Hospitalization, Other)
  Sender: FDA-Public Use
  Company Number: CA-ELI_LILLY_AND_COMPANY-CA200802000170

PATIENT
  Age: 61 Year
  Sex: Female

DRUGS (7)
  1. FORTEO [Suspect]
     Indication: OSTEOPOROSIS
     Dosage: 20 UG, DAILY (1/D)
     Route: 058
     Dates: start: 20070731, end: 20080303
  2. PANTOLOC                           /01263201/ [Concomitant]
  3. ATACAND [Concomitant]
  4. COUMADIN [Concomitant]
  5. APO-HYDROXYQUINE [Concomitant]
  6. PREDNISONE [Concomitant]
  7. CALCIUM WITH VITAMIN D /00944201/ [Concomitant]

REACTIONS (4)
  - INCISION SITE INFECTION [None]
  - PAIN IN EXTREMITY [None]
  - PERIPHERAL VASCULAR DISORDER [None]
  - TOE AMPUTATION [None]
